FAERS Safety Report 5012831-8 (Version None)
Quarter: 2006Q2

REPORT INFORMATION
  Report Type: 
  Country: None (occurrence: None)
  Receive Date: 20060530
  Receipt Date: 20060407
  Transmission Date: 20061013
  Serious: No
  Sender: FDA-Public Use
  Company Number: US-BRISTOL-MYERS SQUIBB COMPANY-13341078

PATIENT
  Sex: Male

DRUGS (2)
  1. ERBITUX [Suspect]
     Route: 042
  2. IRINOTECAN HCL [Concomitant]

REACTIONS (1)
  - MUCOSAL INFLAMMATION [None]
